FAERS Safety Report 5578755-2 (Version None)
Quarter: 2007Q4

REPORT INFORMATION
  Report Type: 
  Country: None (occurrence: None)
  Receive Date: 20071227
  Receipt Date: 20071219
  Transmission Date: 20080405
  Serious: Yes (Other)
  Sender: FDA-Public Use
  Company Number: 2007325538

PATIENT
  Age: 49 Year
  Sex: Female

DRUGS (6)
  1. BENGAY VANISHING (MENTHOL) [Suspect]
     Indication: BACK PAIN
     Dosage: TWO TIMES DAILY (2 IN 1 D), TOPICAL
     Route: 061
     Dates: end: 20070716
  2. FLEXERIL [Concomitant]
  3. PREVACID [Concomitant]
  4. ABILIFY [Concomitant]
  5. ZYPREXA [Concomitant]
  6. DEPAKOTE [Concomitant]

REACTIONS (2)
  - DERMATITIS [None]
  - SWELLING [None]
